FAERS Safety Report 5945351-4 (Version None)
Quarter: 2008Q4

REPORT INFORMATION
  Report Type: 
  Country: None (occurrence: None)
  Receive Date: 20081107
  Receipt Date: 20081027
  Transmission Date: 20090506
  Serious: Yes (Hospitalization, Other)
  Sender: FDA-Public Use
  Company Number: US-PFIZER INC-2005121507

PATIENT
  Sex: Male
  Weight: 72.6 kg

DRUGS (18)
  1. NEURONTIN [Suspect]
     Indication: BACK PAIN
     Dates: start: 20000101, end: 20040501
  2. NEURONTIN [Suspect]
     Indication: RESTLESS LEGS SYNDROME
  3. BEXTRA [Suspect]
     Indication: ILL-DEFINED DISORDER
     Dates: start: 20040501, end: 20040501
  4. VIOXX [Suspect]
     Indication: ILL-DEFINED DISORDER
     Dates: start: 20000101, end: 20040501
  5. FENTANYL-25 [Suspect]
     Indication: ILL-DEFINED DISORDER
     Dates: start: 20020101, end: 20040501
  6. VICODIN [Suspect]
     Indication: ILL-DEFINED DISORDER
  7. OPIOIDS [Suspect]
     Indication: ILL-DEFINED DISORDER
  8. HYDROCODONE BITARTRATE + ACETAMINOPHEN [Concomitant]
     Dates: start: 20000101
  9. TIZANIDINE HCL [Concomitant]
     Dates: start: 20000101
  10. DOCUSATE SODIUM [Concomitant]
     Dates: start: 20000101
  11. AMITRIPTYLINE HCL [Concomitant]
     Dates: start: 20000101
  12. BUPROPION HCL [Concomitant]
     Dates: start: 20000101
  13. NEXIUM [Concomitant]
     Dates: start: 20000101
  14. ALLEGRA-D [Concomitant]
     Dates: start: 20000101
  15. DEXTROMETHORPHAN [Concomitant]
     Dates: start: 20000101
  16. GUAIFENESIN [Concomitant]
     Dates: start: 20000101
  17. PHENYLEPHRINE [Concomitant]
     Dates: start: 20000101
  18. VIAGRA [Concomitant]
     Dates: start: 20000101

REACTIONS (15)
  - ADVERSE EVENT [None]
  - ALCOHOL POISONING [None]
  - CONVULSION [None]
  - DYSSTASIA [None]
  - HEADACHE [None]
  - HIATUS HERNIA [None]
  - MENTAL STATUS CHANGES [None]
  - OVERDOSE [None]
  - PAIN [None]
  - ROAD TRAFFIC ACCIDENT [None]
  - SOMNOLENCE [None]
  - SPEECH DISORDER [None]
  - SPINAL OSTEOARTHRITIS [None]
  - UNEVALUABLE EVENT [None]
  - VISUAL IMPAIRMENT [None]
